FAERS Safety Report 9333039 (Version 3)
Quarter: 2013Q3

REPORT INFORMATION
  Report Type: Report from Study
  Country: IT (occurrence: IT)
  Receive Date: 20130606
  Receipt Date: 20130701
  Transmission Date: 20140515
  Serious: Yes (Other)
  Sender: FDA-Public Use
  Company Number: PHHO2012IT008470

PATIENT
  Sex: 0

DRUGS (7)
  1. SOM230 [Suspect]
     Indication: PITUITARY-DEPENDENT CUSHING^S SYNDROME
     Dosage: DOSE BLINDED
     Dates: start: 20120117
  2. YASMINELLE [Suspect]
     Indication: METRORRHAGIA
     Dosage: 0.02/3MG 21XMONTHLY
     Route: 048
     Dates: start: 200801, end: 20120601
  3. ENALAPRIL [Concomitant]
     Indication: HYPERTENSION
     Dosage: 5 MG, QD
     Route: 048
     Dates: start: 20120313, end: 20120601
  4. ENALAPRIL [Concomitant]
     Dosage: 15 MG/DIE
     Dates: start: 20121212
  5. METFORMIN [Concomitant]
     Indication: HYPERGLYCAEMIA
     Dosage: 850 MG, TID
     Route: 048
     Dates: start: 20130206
  6. DEURSIL RR [Concomitant]
     Indication: CHOLELITHIASIS
     Dosage: 450 MG,/DIE
     Dates: start: 20120801
  7. WARFARIN [Concomitant]
     Indication: DEEP VEIN THROMBOSIS
     Dosage: ACCORDING TO INR
     Dates: start: 20120612

REACTIONS (1)
  - Deep vein thrombosis [Recovering/Resolving]
